FAERS Safety Report 16735760 (Version 2)
Quarter: 2019Q3

REPORT INFORMATION
  Report Type: Spontaneous
  Country: PL (occurrence: PL)
  Receive Date: 20190823
  Receipt Date: 20190904
  Transmission Date: 20191005
  Serious: Yes (Other)
  Sender: FDA-Public Use
  Company Number: PL-MYLANLABS-2019M1078272

PATIENT
  Sex: Female
  Weight: 63 kg

DRUGS (10)
  1. LAPATINIB [Concomitant]
     Active Substance: LAPATINIB
     Indication: BREAST CANCER
     Dosage: UNK
     Route: 065
     Dates: start: 201804
  2. SPIRONOLACTONE. [Concomitant]
     Active Substance: SPIRONOLACTONE
     Dosage: UNK
  3. LOSARTAN. [Concomitant]
     Active Substance: LOSARTAN
     Dosage: UNK
  4. TRASTUZUMAB. [Suspect]
     Active Substance: TRASTUZUMAB
     Indication: BREAST CANCER
     Dosage: 8 MILLIGRAM/KILOGRAM
     Route: 042
     Dates: start: 201503, end: 2016
  5. TRASTUZUMAB. [Suspect]
     Active Substance: TRASTUZUMAB
     Dosage: 6 MILLIGRAM/KILOGRAM, Q21D
     Route: 042
     Dates: start: 201703, end: 2018
  6. RAMIPRIL. [Concomitant]
     Active Substance: RAMIPRIL
     Dosage: UNK
  7. CARVEDILOL. [Concomitant]
     Active Substance: CARVEDILOL
     Dosage: UNK
     Route: 065
  8. PERTUZUMAB. [Suspect]
     Active Substance: PERTUZUMAB
     Indication: BREAST CANCER
     Dosage: UNK
     Route: 065
     Dates: start: 201703, end: 2018
  9. CAPECITABINE. [Suspect]
     Active Substance: CAPECITABINE
     Indication: BREAST CANCER
     Dosage: UNK
     Route: 065
     Dates: start: 201804
  10. DOCETAXEL. [Concomitant]
     Active Substance: DOCETAXEL
     Indication: BREAST CANCER
     Dosage: UNK
     Route: 065
     Dates: end: 2018

REACTIONS (15)
  - Ventricular hypokinesia [Unknown]
  - Fatigue [Unknown]
  - Malaise [Unknown]
  - Exercise tolerance decreased [Unknown]
  - Breast cancer recurrent [Unknown]
  - Ejection fraction decreased [Unknown]
  - Palpitations [Unknown]
  - Lymphoma [Unknown]
  - Neoplasm [Unknown]
  - Asthenia [Unknown]
  - Cough [Unknown]
  - Cardiac failure [Recovered/Resolved]
  - Pulmonary mass [Unknown]
  - Left ventricular enlargement [Unknown]
  - Mood altered [Unknown]

NARRATIVE: CASE EVENT DATE: 201509
